FAERS Safety Report 9773684 (Version 1)
Quarter: 2013Q4

REPORT INFORMATION
  Report Type: Spontaneous
  Country: PL (occurrence: None)
  Receive Date: 20131218
  Receipt Date: 20131218
  Transmission Date: 20140711
  Serious: Yes (Other)
  Sender: FDA-Public Use
  Company Number: AUR-APL-2013-10534

PATIENT
  Age: 74 Year
  Sex: Female

DRUGS (2)
  1. AMOXICILLIN+CLAVULANIC ACID [Suspect]
     Indication: PYREXIA
     Dosage: 1250 MG (625 MG, 2 IN 1 D),
  2. IBUPROFEN [Suspect]
     Indication: PYREXIA

REACTIONS (20)
  - Drug effect incomplete [None]
  - Haemoglobin decreased [None]
  - Red blood cell count decreased [None]
  - Platelet count increased [None]
  - Tuberculosis [None]
  - Jaundice [None]
  - Hepatitis [None]
  - Pyrexia [None]
  - Skin lesion [None]
  - Skin mass [None]
  - Bronchospasm [None]
  - Serum ferritin decreased [None]
  - Hepatomegaly [None]
  - Cholelithiasis [None]
  - Ascites [None]
  - Transaminases increased [None]
  - Hepatic lesion [None]
  - Toxocariasis [None]
  - Granuloma [None]
  - Abscess [None]
